FAERS Safety Report 20816059 (Version 1)
Quarter: 2022Q2

REPORT INFORMATION
  Report Type: Spontaneous
  Country: FR (occurrence: FR)
  Receive Date: 20220511
  Receipt Date: 20220511
  Transmission Date: 20220721
  Serious: Yes (Hospitalization)
  Sender: FDA-Public Use
  Company Number: None

PATIENT
  Age: 66 Year
  Sex: Female
  Weight: 42.5 kg

DRUGS (2)
  1. BRINTELLIX [Suspect]
     Active Substance: VORTIOXETINE HYDROBROMIDE
     Indication: Intentional overdose
     Dosage: UNK
     Route: 048
     Dates: start: 20220309, end: 20220309
  2. TERALITHE [Suspect]
     Active Substance: LITHIUM CARBONATE
     Indication: Intentional overdose
     Dosage: UNK
     Route: 048
     Dates: start: 20220309, end: 20220309

REACTIONS (5)
  - Electrocardiogram QT prolonged [Recovered/Resolved]
  - Hypokalaemia [Recovered/Resolved]
  - Hypernatraemia [Recovered/Resolved]
  - Poisoning deliberate [Recovering/Resolving]
  - Seizure [Recovering/Resolving]

NARRATIVE: CASE EVENT DATE: 20220309
